FAERS Safety Report 7481519 (Version 6)
Quarter: 2013Q1

REPORT INFORMATION
  Report Type: Report from Study
  Country: KR (occurrence: KR)
  Receive Date: 20100716
  Receipt Date: 20130315
  Transmission Date: 20140127
  Serious: Yes (Hospitalization)
  Sender: FDA-Public Use
  Company Number: KR-ABBOTT-10P-090-0656061-00

PATIENT
  Age: 37 Year
  Sex: Male

DRUGS (18)
  1. KALETRA TABLETS [Suspect]
     Indication: PRODUCT USED FOR UNKNOWN INDICATION
     Dates: start: 20100222
  2. 3TC/AZT [Concomitant]
     Indication: ANTIRETROVIRAL THERAPY
     Dates: start: 20100222
  3. MEIACT [Concomitant]
     Indication: PNEUMONIA
     Route: 048
     Dates: start: 20100221, end: 20100227
  4. SULFAMETHOXAZOLE AND TRIMETHOPRIM [Concomitant]
     Indication: ANTIFUNGAL PROPHYLAXIS
     Route: 048
     Dates: start: 20100214, end: 20100711
  5. SULFAMETHOXAZOLE AND TRIMETHOPRIM [Concomitant]
     Route: 048
     Dates: start: 20100712
  6. BROPHYLLINE CAPSULE 100 MG [Concomitant]
     Indication: RHINORRHOEA
     Route: 048
     Dates: start: 20100222, end: 20100227
  7. BROPHYLLINE CAPSULE 100 MG [Concomitant]
     Indication: PRODUCTIVE COUGH
  8. LEVOTUSS [Concomitant]
     Indication: ANTITUSSIVE THERAPY
     Dosage: 6MG/ML, 30 ML DAILY
     Route: 048
     Dates: start: 20100222, end: 20100227
  9. KLARICID [Concomitant]
     Indication: OPPORTUNISTIC INFECTION PROPHYLAXIS
     Route: 048
     Dates: start: 20100329, end: 20100428
  10. PRODIAX 23 [Concomitant]
     Indication: IMMUNISATION
     Dosage: 25MCG/ML, 0.5 ML
     Route: 030
     Dates: start: 20100712, end: 20100712
  11. PRODIAX 23 [Concomitant]
     Indication: PNEUMONIA
  12. LITIUMKARBONAT [Concomitant]
     Indication: BIPOLAR DISORDER
     Dosage: 1050 MG DAILY
     Route: 048
     Dates: start: 20081024
  13. SEROQUEL [Concomitant]
     Indication: BIPOLAR DISORDER
     Route: 048
     Dates: start: 20081024
  14. RIVOTRIL [Concomitant]
     Indication: BIPOLAR DISORDER
     Route: 048
     Dates: start: 20081024
  15. PERIDOL [Concomitant]
     Indication: BIPOLAR DISORDER
     Dosage: 5MG/ML, 7.5 MG DAILY
     Route: 042
     Dates: start: 20100306, end: 20100310
  16. ATIVAN [Concomitant]
     Indication: BIPOLAR DISORDER
     Dosage: 4MG/ML, 2 MG DAILY
     Route: 042
     Dates: start: 20100306, end: 20100310
  17. BENZTROPINE MESYLATE [Concomitant]
     Indication: BIPOLAR DISORDER
     Route: 048
     Dates: start: 20100310
  18. INFLUENZA VACCINE [Concomitant]
     Indication: INFLUENZA IMMUNISATION
     Dosage: 90 MCG/ML 0.5ML: TOTAL DAILY DOSE 1 VIAL
     Route: 030
     Dates: start: 20101101, end: 20101101

REACTIONS (1)
  - Bipolar disorder [Recovering/Resolving]
